FAERS Safety Report 4844908-1 (Version None)
Quarter: 2005Q4

REPORT INFORMATION
  Report Type: 
  Country: None (occurrence: None)
  Receive Date: 20051128
  Receipt Date: 20051116
  Transmission Date: 20060501
  Serious: Yes (Other)
  Sender: FDA-Public Use
  Company Number: 28015

PATIENT
  Age: 71 Year
  Sex: Female

DRUGS (3)
  1. ALDARA [Suspect]
     Indication: PAGET'S DISEASE OF THE VULVA
     Dosage: SEE IMAGE
     Route: 061
     Dates: start: 20050601, end: 20050801
  2. ALDARA [Suspect]
     Indication: PAGET'S DISEASE OF THE VULVA
     Dosage: SEE IMAGE
     Route: 061
     Dates: start: 20050801, end: 20051001
  3. ALDARA [Suspect]
     Indication: PAGET'S DISEASE OF THE VULVA
     Dosage: SEE IMAGE
     Route: 061
     Dates: start: 20051001

REACTIONS (3)
  - ADRENAL NEOPLASM [None]
  - LYMPHADENOPATHY [None]
  - UTERINE CERVIX HYPERTROPHY [None]
